FAERS Safety Report 8850238 (Version 3)
Quarter: 2012Q4

REPORT INFORMATION
  Report Type: 
  Country: FR (occurrence: FR)
  Receive Date: 20121019
  Receipt Date: 20121114
  Transmission Date: 20130627
  Serious: Yes (Death, Life-Threatening, Hospitalization)
  Sender: FDA-Public Use
  Company Number: FR-B.I. PHARMACEUTICALS,INC./RIDGEFIELD-2012-FF-01506FF

PATIENT
  Age: 79 Year
  Sex: Male

DRUGS (4)
  1. PRADAXA [Suspect]
     Indication: ATRIAL FIBRILLATION
     Dosage: 150 mg
     Route: 048
     Dates: start: 201204, end: 20120919
  2. AMIODARONE [Suspect]
     Dosage: 200 mg
     Route: 048
  3. SPIRIVA [Concomitant]
     Route: 055
  4. MIRTAZAPINE [Concomitant]

REACTIONS (1)
  - Haemoptysis [Fatal]
